FAERS Safety Report 21739392 (Version 8)
Quarter: 2023Q2

REPORT INFORMATION
  Report Type: Spontaneous
  Country: JP (occurrence: JP)
  Receive Date: 20221216
  Receipt Date: 20230427
  Transmission Date: 20230722
  Serious: Yes (Death, Hospitalization, Congenital Anomaly, Other)
  Sender: FDA-Public Use
  Company Number: None

PATIENT

DRUGS (9)
  1. SOTROVIMAB [Suspect]
     Active Substance: SOTROVIMAB
     Indication: COVID-19
     Dosage: 500 MG/ 100 ML/ 30 MIN
     Route: 042
     Dates: start: 20221121, end: 20221121
  2. CALONAL [Concomitant]
     Active Substance: ACETAMINOPHEN
     Indication: COVID-19
     Dosage: 500 MG
     Dates: start: 20220722
  3. CALONAL [Concomitant]
     Active Substance: ACETAMINOPHEN
     Dosage: ADMINISTERED ONLY ONCE
     Dates: start: 20221121
  4. HERBALS [Concomitant]
     Active Substance: HERBALS
     Dosage: 5 G
     Route: 048
     Dates: start: 20220816
  5. HERBALS [Concomitant]
     Active Substance: HERBALS
     Dosage: UNK
     Dates: start: 20221201, end: 20221211
  6. ACETAMINOPHEN\TRAMADOL HYDROCHLORIDE [Concomitant]
     Active Substance: ACETAMINOPHEN\TRAMADOL HYDROCHLORIDE
     Indication: Arthralgia
     Dosage: UNK
     Dates: start: 20221208, end: 20221211
  7. DONEPEZIL HYDROCHLORIDE [Concomitant]
     Active Substance: DONEPEZIL HYDROCHLORIDE
     Dosage: 1 DF
     Route: 048
  8. DULOXETINE OD [Concomitant]
     Dosage: 2 DF
     Route: 048
     Dates: start: 20220803, end: 20221211
  9. FAMOTIDINE [Concomitant]
     Active Substance: FAMOTIDINE
     Dosage: 2 DF
     Route: 048
     Dates: start: 20221001, end: 20230119

REACTIONS (8)
  - Pneumonia [Fatal]
  - Interstitial lung disease [Fatal]
  - Depressed level of consciousness [Fatal]
  - Dyspnoea [Fatal]
  - Decreased appetite [Fatal]
  - Cough [Fatal]
  - General physical health deterioration [Fatal]
  - Pyrexia [Unknown]

NARRATIVE: CASE EVENT DATE: 20221204
